FAERS Safety Report 5510680-5 (Version None)
Quarter: 2007Q4

REPORT INFORMATION
  Report Type: 
  Country: None (occurrence: None)
  Receive Date: 20071107
  Receipt Date: 20071030
  Transmission Date: 20080405
  Serious: Yes (Other)
  Sender: FDA-Public Use
  Company Number: 2007334151

PATIENT

DRUGS (1)
  1. LISTERINE (MENTHOL, METHYL SALICYLATE, EYCALYPTOL, THYMOL) [Suspect]
     Dosage: UNSPECIFIED ON AN EVERYDAY

REACTIONS (2)
  - INCORRECT ROUTE OF DRUG ADMINISTRATION [None]
  - INTENTIONAL DRUG MISUSE [None]
